FAERS Safety Report 25816551 (Version 2)
Quarter: 2025Q3

REPORT INFORMATION
  Report Type: Spontaneous
  Country: US (occurrence: US)
  Receive Date: 20250918
  Receipt Date: 20250925
  Transmission Date: 20251021
  Serious: Yes (Hospitalization)
  Sender: CATALYST PHARMA
  Company Number: US-CATALYST PHARMACEUTICALS, INC-US-CATA-25-01249

PATIENT
  Sex: Male
  Weight: 91.61 kg

DRUGS (18)
  1. FIRDAPSE [Suspect]
     Active Substance: AMIFAMPRIDINE PHOSPHATE
     Indication: Myasthenic syndrome
     Dosage: ONE 10 MG TABLET IN 10 ML OF WATER, TAKING 5 ML THREE TIMES A DAY, TITRATED UP TO THE 30 ML DOSE
     Dates: start: 20250527, end: 2025
  2. FIRDAPSE [Suspect]
     Active Substance: AMIFAMPRIDINE PHOSPHATE
     Dosage: DISSOLVE ONE (10 MG) TABLET 10 ML OF WATER AND TAKE VIA G-TUBE FOUR TIMES A DAY
     Dates: start: 20250620
  3. FIRDAPSE [Suspect]
     Active Substance: AMIFAMPRIDINE PHOSPHATE
     Dosage: DISSOLVES THREE 10 MG TABLETS IN 30 ML OF WATER AND TAKES 10 ML OF THAT SUSPENSION THREE TIMES A DAY
     Dates: start: 20250625
  4. ALBUTEROL SULFATE [Concomitant]
     Active Substance: ALBUTEROL SULFATE
     Indication: Dyspnoea
     Dosage: INHALATION SOLUTION 25 MG/0.5 ML INHALES TWICE A DAY
     Route: 055
  5. ASPIRIN [Concomitant]
     Active Substance: ASPIRIN
     Indication: Thrombosis prophylaxis
     Dosage: 81 MG BY A PEG TUBE ONE DAILY
  6. BUDESONIDE [Concomitant]
     Active Substance: BUDESONIDE
     Indication: Dyspnoea
     Dosage: INHALATION SUSPENSION 0.5 MG/2 ML TWICE DAILY
     Route: 055
  7. CLARITIN [Concomitant]
     Active Substance: LORATADINE
     Indication: Hypersensitivity
     Dosage: 10 MG BY A PEG TUBE ONE DAILY
  8. ELIQUIS [Concomitant]
     Active Substance: APIXABAN
     Indication: Thrombosis prophylaxis
     Dosage: 5 MG TWICE DAILY BY A PEG TUBE
  9. FAMOTIDINE [Concomitant]
     Active Substance: FAMOTIDINE
     Indication: Gastrooesophageal reflux disease
     Dosage: 20 MG BY A PEG TUBE ONE TWICE A DAY
  10. FLONASE ALLERGY RELEASE [Concomitant]
     Indication: Hypersensitivity
     Route: 045
  11. MECLIZINE [Concomitant]
     Active Substance: MECLIZINE HYDROCHLORIDE
     Indication: Dizziness
     Route: 065
  12. MESTINON [Concomitant]
     Active Substance: PYRIDOSTIGMINE BROMIDE
     Indication: Myasthenic syndrome
     Dosage: 60 MG 1 TWICE A DAY BY A PEG TUBE
  13. MESTINON [Concomitant]
     Active Substance: PYRIDOSTIGMINE BROMIDE
     Indication: Myasthenic syndrome
     Dosage: 60 MG/5 ML 45 MG DAILY VIA PEG
  14. MIDODRINE [Concomitant]
     Active Substance: MIDODRINE
     Indication: Hypotension
     Route: 065
  15. MIRALAX [Concomitant]
     Active Substance: POLYETHYLENE GLYCOL 3350
     Indication: Constipation
  16. MYCOPHENOLIC ACID [Concomitant]
     Active Substance: MYCOPHENOLIC ACID
     Indication: Myasthenic syndrome
     Dosage: ORAL SUSPENSION 5 ML BY A PEG TUBE TWICE A DAY
  17. TYLENOL [Concomitant]
     Active Substance: ACETAMINOPHEN
     Indication: Pain
  18. ZETIA [Concomitant]
     Active Substance: EZETIMIBE
     Indication: Dyslipidaemia
     Dosage: 10 MG ONE DAILY BY PEG TUBE

REACTIONS (6)
  - Sepsis [Not Recovered/Not Resolved]
  - Pneumonia aspiration [Not Recovered/Not Resolved]
  - Sleep apnoea syndrome [Not Recovered/Not Resolved]
  - Diarrhoea [Unknown]
  - Rash [Unknown]
  - Migraine [Unknown]

NARRATIVE: CASE EVENT DATE: 20250101
